FAERS Safety Report 20882222 (Version 1)
Quarter: 2022Q2

REPORT INFORMATION
  Report Type: Spontaneous
  Country: US (occurrence: US)
  Receive Date: 20220527
  Receipt Date: 20220527
  Transmission Date: 20220721
  Serious: Yes (Other)
  Sender: FDA-Public Use
  Company Number: US-CELGENE-USA-20220302449

PATIENT
  Age: 72 Year
  Sex: Male

DRUGS (2)
  1. REVLIMID [Suspect]
     Active Substance: LENALIDOMIDE
     Indication: Prostate cancer
     Dosage: DAILY ON DAYS 1-14 OF EACH 21-DAY CYCLE
     Route: 048
     Dates: start: 20220504
  2. REVLIMID [Suspect]
     Active Substance: LENALIDOMIDE
     Indication: Plasma cell myeloma

REACTIONS (6)
  - Multiple fractures [Unknown]
  - Arthralgia [Unknown]
  - Malaise [Recovered/Resolved]
  - Blood iron decreased [Unknown]
  - Hypersensitivity [Unknown]
  - Off label use [Unknown]
